FAERS Safety Report 23658005 (Version 2)
Quarter: 2024Q1

REPORT INFORMATION
  Report Type: Spontaneous
  Country: US (occurrence: US)
  Receive Date: 20240321
  Receipt Date: 20240328
  Transmission Date: 20240410
  Serious: No
  Sender: FDA-Public Use
  Company Number: US-PFIZER INC-202400057917

PATIENT
  Age: 2 Year
  Sex: Male
  Weight: 15 kg

DRUGS (2)
  1. GENOTROPIN [Suspect]
     Active Substance: SOMATROPIN
     Indication: Short stature homeobox gene mutation
     Dosage: 0.5 MG, DAILY
     Dates: start: 20230131
  2. GENOTROPIN [Suspect]
     Active Substance: SOMATROPIN
     Dosage: 0.4 MG ONE DAY AND 0.5 MG THE NEXT DAY

REACTIONS (6)
  - Product dose omission in error [Unknown]
  - Drug dose omission by device [Not Recovered/Not Resolved]
  - Device breakage [Not Recovered/Not Resolved]
  - Expired device used [Unknown]
  - Vitamin D decreased [Unknown]
  - Off label use [Unknown]

NARRATIVE: CASE EVENT DATE: 20230131
